FAERS Safety Report 23472379 (Version 2)
Quarter: 2024Q1

REPORT INFORMATION
  Report Type: Spontaneous
  Country: DE (occurrence: None)
  Receive Date: 20240202
  Receipt Date: 20240315
  Transmission Date: 20240409
  Serious: Yes (Other)
  Sender: FDA-Public Use
  Company Number: 2024A026139

PATIENT
  Sex: Female

DRUGS (6)
  1. DURVALUMAB [Suspect]
     Active Substance: DURVALUMAB
     Dates: start: 202204
  2. DURVALUMAB [Suspect]
     Active Substance: DURVALUMAB
     Dates: start: 202206
  3. CISPLATIN [Concomitant]
     Active Substance: CISPLATIN
     Dosage: 75?MG/M2?D1
     Dates: start: 202204
  4. ETOPOSIDE [Concomitant]
     Active Substance: ETOPOSIDE
     Dosage: 100?MG/M2?D1-3
     Dates: start: 202204
  5. ANTIDIURETIC [Concomitant]
  6. TOLVAPTAN THERAPY [Concomitant]

REACTIONS (2)
  - Malignant neoplasm oligoprogression [Unknown]
  - Off label use [Unknown]
